FAERS Safety Report 5362345-0 (Version None)
Quarter: 2007Q2

REPORT INFORMATION
  Report Type: 
  Country: None (occurrence: None)
  Receive Date: 20070619
  Receipt Date: 20070611
  Transmission Date: 20071010
  Serious: Yes (Death)
  Sender: FDA-Public Use
  Company Number: US-ELI_LILLY_AND_COMPANY-US200706002228

PATIENT
  Age: 62 Year
  Sex: Male

DRUGS (1)
  1. HUMULIN R [Suspect]

REACTIONS (2)
  - DEATH [None]
  - WRONG DRUG ADMINISTERED [None]
